FAERS Safety Report 13036611 (Version 2)
Quarter: 2017Q1

REPORT INFORMATION
  Report Type: Spontaneous
  Country: FR (occurrence: FR)
  Receive Date: 20161216
  Receipt Date: 20170117
  Transmission Date: 20170428
  Serious: Yes (Death, Hospitalization)
  Sender: FDA-Public Use
  Company Number: FR-TEVA-719797ISR

PATIENT
  Age: 63 Year
  Sex: Female

DRUGS (2)
  1. OLMESARTAN MEDOXOMIL. [Suspect]
     Active Substance: OLMESARTAN MEDOXOMIL
     Indication: TOXICITY TO VARIOUS AGENTS
     Route: 065
  2. AMLODIPINE [Suspect]
     Active Substance: AMLODIPINE BESYLATE
     Indication: TOXICITY TO VARIOUS AGENTS
     Route: 065

REACTIONS (2)
  - Toxicity to various agents [Fatal]
  - Bezoar [Unknown]
